FAERS Safety Report 9291147 (Version 2)
Quarter: 2013Q2

REPORT INFORMATION
  Report Type: Spontaneous
  Country: US (occurrence: US)
  Receive Date: 20130515
  Receipt Date: 20130625
  Transmission Date: 20140414
  Serious: Yes (Hospitalization, Other)
  Sender: FDA-Public Use
  Company Number: US-B.I. PHARMACEUTICALS,INC./RIDGEFIELD-2013-BI-13308BP

PATIENT
  Age: 78 Year
  Sex: Female
  Weight: 81.65 kg

DRUGS (21)
  1. PRADAXA [Suspect]
     Indication: ANTICOAGULANT THERAPY
     Dosage: 300 MG
     Route: 048
     Dates: start: 20110807, end: 20111101
  2. ACTOS [Concomitant]
     Dosage: 15 MG
     Route: 048
     Dates: start: 20110411
  3. ASPIRIN [Concomitant]
     Dosage: 81 MG
     Route: 048
     Dates: start: 20110819
  4. CALTRATE 600+D PLUS MINERALS [Concomitant]
     Route: 048
  5. CIPRO [Concomitant]
     Dosage: 1000 MG
     Route: 048
     Dates: start: 20111031
  6. COREG [Concomitant]
     Dosage: 3.125 MG
     Route: 048
     Dates: start: 20110107
  7. DIOVAN [Concomitant]
     Dosage: 320 MG
     Route: 048
     Dates: start: 20111013
  8. FERREX [Concomitant]
     Route: 048
  9. FISH OIL [Concomitant]
     Route: 048
  10. FUROSEMIDE [Concomitant]
     Dosage: 40 MG
     Route: 048
     Dates: start: 20111013
  11. GARLIC [Concomitant]
     Dosage: 1000 MG
     Route: 048
  12. GLYBURIDE [Concomitant]
     Dosage: 10 MG
     Route: 048
     Dates: start: 20101007
  13. HYDROCHLOROTHIAZIDE [Concomitant]
     Dosage: 25 MG
     Route: 048
     Dates: start: 20110411
  14. ISOSORBIDE MONONITRATE [Concomitant]
     Dosage: 30 MG
     Route: 048
     Dates: start: 20110411
  15. KLOR-CON [Concomitant]
     Dosage: 80 MEQ
     Route: 048
     Dates: start: 20111013
  16. LORTAB [Concomitant]
     Indication: PAIN
     Route: 048
     Dates: start: 20111013
  17. NASCOBAL [Concomitant]
     Dosage: 71.4286 MCG
     Route: 045
     Dates: start: 20110602
  18. PROMETHAZINE [Concomitant]
     Dosage: 100 MG
     Route: 048
     Dates: start: 20111031
  19. SIMVASTATIN [Concomitant]
     Dosage: 20 MG
     Route: 048
     Dates: start: 20110411
  20. VITAMIN B-12 [Concomitant]
     Dosage: 0.2857 ML
     Dates: start: 20110412
  21. VITAMIN E [Concomitant]
     Dosage: 400 U
     Route: 048

REACTIONS (3)
  - Upper gastrointestinal haemorrhage [Unknown]
  - Iron deficiency anaemia [Unknown]
  - Haematoma [Unknown]
